FAERS Safety Report 9269167 (Version 1)
Quarter: 2013Q2

REPORT INFORMATION
  Report Type: Spontaneous
  Country: US (occurrence: None)
  Receive Date: 20130502
  Receipt Date: 20130502
  Transmission Date: 20140414
  Serious: No
  Sender: FDA-Public Use
  Company Number: None

PATIENT
  Sex: 0

DRUGS (1)
  1. LUPRON [Suspect]

REACTIONS (7)
  - Hallucination [None]
  - Confusional state [None]
  - Arthralgia [None]
  - Cystitis [None]
  - Amnesia [None]
  - Accidental overdose [None]
  - Pneumonia [None]
